FAERS Safety Report 8832024 (Version 3)
Quarter: 2012Q4

REPORT INFORMATION
  Report Type: Report from Study
  Country: US (occurrence: US)
  Receive Date: 20121009
  Receipt Date: 20121128
  Transmission Date: 20130627
  Serious: Yes (Other)
  Sender: FDA-Public Use
  Company Number: US-JNJFOC-20121001381

PATIENT
  Age: 79 Year
  Sex: Male
  Weight: 72.58 kg

DRUGS (4)
  1. XARELTO [Suspect]
     Indication: CEREBROVASCULAR ACCIDENT PROPHYLAXIS
     Route: 048
     Dates: start: 20120209, end: 20121009
  2. XARELTO [Suspect]
     Indication: ATRIAL FIBRILLATION
     Route: 048
     Dates: start: 20120209, end: 20121009
  3. ARMOUR THYROID [Concomitant]
     Indication: THYROID DISORDER
     Route: 048
     Dates: start: 20120209, end: 20121009
  4. ARMOUR THYROID [Concomitant]
     Indication: THYROID DISORDER
     Route: 048
     Dates: start: 2009

REACTIONS (1)
  - Dizziness [Recovered/Resolved]
